FAERS Safety Report 8357506-2 (Version None)
Quarter: 2012Q2

REPORT INFORMATION
  Report Type: 
  Country: None (occurrence: None)
  Receive Date: 20120510
  Receipt Date: 20120424
  Transmission Date: 20120825
  Serious: Yes (Hospitalization)
  Sender: FDA-Public Use
  Company Number: 2010R1-39464

PATIENT
  Age: 73 Year
  Sex: Female

DRUGS (10)
  1. BISOPROLOL FUMARATE [Concomitant]
  2. TERBUTALINE SULFATE [Concomitant]
  3. METFORMIN HCL [Suspect]
     Indication: TYPE 2 DIABETES MELLITUS
     Dosage: 850 MG, TID,
  4. ACENOCOUMAROL (ACENOCOUMAROL) [Concomitant]
  5. ESCITALOPRAM [Concomitant]
  6. TIOTROPIUM BROMIDE (TIOTROPIUM BROMIDE) [Concomitant]
  7. TORSEMIDE [Concomitant]
  8. DIGOXIN [Concomitant]
  9. INSULIN GLARGINE (INSULIN GLARGINE) [Concomitant]
  10. LORMETAZEPAM (LORMETAZEPAM) [Concomitant]

REACTIONS (27)
  - ABDOMINAL PAIN UPPER [None]
  - ANAEMIA [None]
  - PROTHROMBIN TIME PROLONGED [None]
  - COAGULOPATHY [None]
  - HYPOGLYCAEMIA [None]
  - SEPTIC SHOCK [None]
  - POLYDIPSIA [None]
  - THROMBOCYTOPENIA [None]
  - RENAL FAILURE ACUTE [None]
  - HYPOTENSION [None]
  - HYPERGLYCAEMIA [None]
  - LACTIC ACIDOSIS [None]
  - LEUKOCYTOSIS [None]
  - CONTINUOUS HAEMODIAFILTRATION [None]
  - IRON METABOLISM DISORDER [None]
  - HEPATOTOXICITY [None]
  - POLYURIA [None]
  - NEUTROPHILIA [None]
  - CARDIAC FAILURE [None]
  - VOMITING [None]
  - INTERNATIONAL NORMALISED RATIO INCREASED [None]
  - HEART RATE DECREASED [None]
  - TRANSFUSION RELATED COMPLICATION [None]
  - DEHYDRATION [None]
  - ACTIVATED PARTIAL THROMBOPLASTIN TIME PROLONGED [None]
  - PLEURAL EFFUSION [None]
  - HEPATIC FAILURE [None]
